FAERS Safety Report 24969363 (Version 1)
Quarter: 2025Q1

REPORT INFORMATION
  Report Type: Report from Study
  Country: IN (occurrence: IN)
  Receive Date: 20250214
  Receipt Date: 20250214
  Transmission Date: 20250408
  Serious: Yes (Other)
  Sender: CIPLA
  Company Number: IN-CIPLA LTD.-2025IN01828

PATIENT

DRUGS (6)
  1. WARFARIN SODIUM [Suspect]
     Active Substance: WARFARIN SODIUM
     Indication: Anticoagulant therapy
     Dosage: 4 MILLIGRAM, QD
     Route: 048
  2. SPIRONOLACTONE\TORSEMIDE [Suspect]
     Active Substance: SPIRONOLACTONE\TORSEMIDE
     Indication: Product used for unknown indication
     Dosage: 10 MILLIGRAM, QD
     Route: 048
  3. ACETAMINOPHEN [Concomitant]
     Active Substance: ACETAMINOPHEN
     Indication: Product used for unknown indication
     Route: 065
  4. FERROUS FUMARATE\FOLIC ACID\ZINC SULFATE [Concomitant]
     Active Substance: FERROUS FUMARATE\FOLIC ACID\ZINC SULFATE
     Indication: Product used for unknown indication
     Route: 065
  5. URIMAX [TAMSULOSIN HYDROCHLORIDE] [Concomitant]
     Indication: Product used for unknown indication
     Route: 065
  6. URIMAX [TAMSULOSIN HYDROCHLORIDE] [Concomitant]
     Route: 065

REACTIONS (3)
  - Adverse event [Not Recovered/Not Resolved]
  - Constipation [Not Recovered/Not Resolved]
  - Cough [Not Recovered/Not Resolved]

NARRATIVE: CASE EVENT DATE: 20250101
